FAERS Safety Report 18489864 (Version 4)
Quarter: 2020Q4

REPORT INFORMATION
  Report Type: Spontaneous
  Country: US (occurrence: US)
  Receive Date: 20201111
  Receipt Date: 20201204
  Transmission Date: 20210114
  Serious: Yes (Other)
  Sender: FDA-Public Use
  Company Number: US-PFIZER INC-2020439339

PATIENT
  Age: 75 Year
  Sex: Female

DRUGS (1)
  1. RUXIENCE [Suspect]
     Active Substance: RITUXIMAB-PVVR
     Indication: LYMPHOMA
     Dosage: UNK

REACTIONS (6)
  - Loss of consciousness [Unknown]
  - Blood pressure increased [Unknown]
  - Cardiac arrest [Recovered/Resolved]
  - Nausea [Unknown]
  - Pulse absent [Unknown]
  - Dizziness [Unknown]
